FAERS Safety Report 8791009 (Version 1)
Quarter: 2012Q4

REPORT INFORMATION
  Report Type: Spontaneous
  Country: US (occurrence: None)
  Receive Date: 20120907
  Receipt Date: 20120907
  Transmission Date: 20130627
  Serious: Yes (Other)
  Sender: FDA-Public Use
  Company Number: DSA_59338_2012

PATIENT

DRUGS (4)
  1. FLUOROURACIL (FLUOROURACIL) [Suspect]
     Indication: COLORECTAL CANCER METASTATIC
     Dosage: 400 mg/m2; every other week intravenous bolus, 2400 mg/m2; 46 hour infusion; every other week
     Route: 040
  2. CALCIUM FOLINATE [Suspect]
     Indication: COLORECTAL CANCER METASTATIC
     Dosage: 200 mg/m2; every other week intravenous
     Route: 042
  3. IRINOTECAN [Suspect]
     Indication: COLORECTAL CANCER METASTATIC
     Dosage: 180 mg/m2; every other week intravenous
     Route: 042
  4. SUNITINIB [Suspect]
     Indication: COLORECTAL CANCER METASTATIC
     Dosage: 37.5 mg; daily; 4 weeks on, 2 weeks off oral
     Route: 048

REACTIONS (1)
  - Hypertension [None]
